FAERS Safety Report 8208914-1 (Version None)
Quarter: 2012Q1

REPORT INFORMATION
  Report Type: 
  Country: None (occurrence: None)
  Receive Date: 20120227
  Receipt Date: 20111103
  Transmission Date: 20120608
  Serious: No
  Sender: FDA-Public Use
  Company Number: 339157

PATIENT
  Sex: Male

DRUGS (1)
  1. VICTOZA [Suspect]
     Indication: PRODUCT USED FOR UNKNOWN INDICATION
     Dosage: 0.6 MG, QD, SUBCUTANEOUS
     Route: 058

REACTIONS (1)
  - ABDOMINAL PAIN [None]
